FAERS Safety Report 19253330 (Version 1)
Quarter: 2021Q2

REPORT INFORMATION
  Report Type: Report from Study
  Country: US (occurrence: US)
  Receive Date: 20210513
  Receipt Date: 20210513
  Transmission Date: 20210717
  Serious: Yes (Hospitalization)
  Sender: FDA-Public Use
  Company Number: US-BAYER-2021-137627

PATIENT

DRUGS (1)
  1. ASA [Suspect]
     Active Substance: ASPIRIN
     Dosage: UNK

REACTIONS (2)
  - Labelled drug-drug interaction medication error [None]
  - Cerebral haemorrhage [None]
